FAERS Safety Report 21991560 (Version 1)
Quarter: 2023Q1

REPORT INFORMATION
  Report Type: Spontaneous
  Country: US (occurrence: US)
  Receive Date: 20230214
  Receipt Date: 20230214
  Transmission Date: 20230417
  Serious: No
  Sender: FDA-Public Use
  Company Number: USA--2023-US-000029

PATIENT
  Age: 92 Year
  Sex: Female

DRUGS (5)
  1. LATANOPROST [Suspect]
     Active Substance: LATANOPROST
     Dosage: UNK
     Dates: start: 202001
  2. Clopidigril [Concomitant]
     Route: 048
  3. CARVEDILOL [Concomitant]
     Active Substance: CARVEDILOL
     Route: 048
  4. Nitrogylcerine patches [Concomitant]
     Route: 061
  5. Eye injection for glaucoma [Concomitant]
     Route: 031

REACTIONS (4)
  - Vision blurred [Not Recovered/Not Resolved]
  - Angina unstable [Not Recovered/Not Resolved]
  - Dizziness [Not Recovered/Not Resolved]
  - Chest pain [Not Recovered/Not Resolved]

NARRATIVE: CASE EVENT DATE: 20221001
